FAERS Safety Report 11298931 (Version 1)
Quarter: 2015Q3

REPORT INFORMATION
  Report Type: Spontaneous
  Country: US (occurrence: US)
  Receive Date: 20150722
  Receipt Date: 20150722
  Transmission Date: 20151125
  Serious: No
  Sender: FDA-Public Use
  Company Number: US-ELI_LILLY_AND_COMPANY-US201204004893

PATIENT
  Sex: Female

DRUGS (1)
  1. HUMATROPE [Suspect]
     Active Substance: SOMATROPIN
     Indication: GROWTH HORMONE DEFICIENCY
     Dosage: 0.16 MG, NIGHTLY
     Route: 058
     Dates: start: 1999, end: 201201

REACTIONS (11)
  - Burning sensation [Unknown]
  - Hypersensitivity [Unknown]
  - Dry mouth [Unknown]
  - Nasal dryness [Unknown]
  - Dry eye [Unknown]
  - Sleep disorder [Unknown]
  - Cough [Unknown]
  - Palpitations [Unknown]
  - Intraocular pressure increased [Unknown]
  - Hypertension [Unknown]
  - Headache [Recovered/Resolved]
